FAERS Safety Report 13502845 (Version 2)
Quarter: 2017Q2

REPORT INFORMATION
  Report Type: Spontaneous
  Country: US (occurrence: US)
  Receive Date: 20170502
  Receipt Date: 20170612
  Transmission Date: 20170830
  Serious: No
  Sender: FDA-Public Use
  Company Number: US-GLAXOSMITHKLINE-US2017060694

PATIENT
  Sex: Female

DRUGS (1)
  1. ANORO ELLIPTA [Suspect]
     Active Substance: UMECLIDINIUM BROMIDE\VILANTEROL TRIFENATATE
     Dosage: 1 PUFF(S), QD

REACTIONS (6)
  - Device use error [Unknown]
  - Drug ineffective [Unknown]
  - Extra dose administered [Unknown]
  - Overdose [Unknown]
  - Wrong technique in product usage process [Unknown]
  - Product quality issue [Unknown]
